FAERS Safety Report 4512672-1 (Version None)
Quarter: 2004Q4

REPORT INFORMATION
  Report Type: 
  Country: None (occurrence: None)
  Receive Date: 20041129
  Receipt Date: 20041122
  Transmission Date: 20050328
  Serious: Yes (Life-Threatening, Disabling)
  Sender: FDA-Public Use
  Company Number: US-MERCK-0411USA03570

PATIENT
  Age: 79 Year
  Sex: Female

DRUGS (5)
  1. FOSAMAX [Suspect]
     Indication: OSTEOPOROSIS
     Route: 048
     Dates: start: 19990101, end: 20040920
  2. LIPITOR [Concomitant]
     Route: 065
  3. NORTRIPTYLINE [Concomitant]
     Route: 065
  4. TOPROL-XL [Concomitant]
     Route: 065
  5. FOSAMAX [Concomitant]
     Route: 048
     Dates: start: 20040101

REACTIONS (7)
  - AGEUSIA [None]
  - APHONIA [None]
  - DYSPHAGIA [None]
  - FOREIGN BODY TRAUMA [None]
  - OESOPHAGEAL DISCOMFORT [None]
  - PAIN [None]
  - VOCAL CORD DISORDER [None]
